FAERS Safety Report 7831230-4 (Version None)
Quarter: 2011Q4

REPORT INFORMATION
  Report Type: 
  Country: None (occurrence: None)
  Receive Date: 20111021
  Receipt Date: 20111019
  Transmission Date: 20120403
  Serious: Yes (Hospitalization)
  Sender: FDA-Public Use
  Company Number: FR-ROCHE-1005874

PATIENT
  Age: 45 Year
  Sex: Male

DRUGS (4)
  1. STROMECTOL [Suspect]
     Indication: PRODUCT USED FOR UNKNOWN INDICATION
     Route: 048
     Dates: start: 20110704
  2. MABTHERA [Suspect]
     Route: 042
     Dates: start: 20110722
  3. PREDNISONE [Suspect]
     Indication: CRYOGLOBULINAEMIA
     Route: 048
     Dates: start: 20110704
  4. MABTHERA [Suspect]
     Indication: CRYOGLOBULINAEMIA
     Route: 042
     Dates: start: 20110704, end: 20110718

REACTIONS (1)
  - HEPATITIS [None]
